FAERS Safety Report 24659186 (Version 1)
Quarter: 2024Q4

REPORT INFORMATION
  Report Type: Spontaneous
  Country: CN (occurrence: CN)
  Receive Date: 20241125
  Receipt Date: 20241125
  Transmission Date: 20250115
  Serious: Yes (Other)
  Sender: PFIZER
  Company Number: CN-PFIZER INC-202400304099

PATIENT
  Age: 67 Year
  Sex: Female

DRUGS (1)
  1. LORBRENA [Suspect]
     Active Substance: LORLATINIB
     Dosage: 100 MG, DAILY
     Route: 048

REACTIONS (6)
  - Hallucination, visual [Unknown]
  - Hallucination, auditory [Unknown]
  - Delusion [Unknown]
  - Insomnia [Unknown]
  - Mental status changes [Unknown]
  - Mental disorder [Unknown]
